FAERS Safety Report 14929102 (Version 1)
Quarter: 2018Q2

REPORT INFORMATION
  Report Type: Spontaneous
  Country: GB (occurrence: GB)
  Receive Date: 20180523
  Receipt Date: 20180523
  Transmission Date: 20180711
  Serious: Yes (Disabling)
  Sender: FDA-Public Use
  Company Number: GB-PURDUE PHARMA-GBR-2018-0056005

PATIENT
  Age: 73 Year
  Sex: Male
  Weight: 91 kg

DRUGS (1)
  1. BUPRENORPHINE. [Suspect]
     Active Substance: BUPRENORPHINE
     Indication: NEUROPATHY PERIPHERAL
     Route: 062
     Dates: start: 20100606, end: 20180128

REACTIONS (17)
  - Dysuria [Unknown]
  - Dysstasia [Unknown]
  - Insomnia [Unknown]
  - Fungal infection [Not Recovered/Not Resolved]
  - Vision blurred [Unknown]
  - Muscle spasms [Unknown]
  - Memory impairment [Unknown]
  - Pruritus [Not Recovered/Not Resolved]
  - Pain in extremity [Unknown]
  - Confusional state [Unknown]
  - Fatigue [Unknown]
  - Dizziness [Unknown]
  - Malaise [Unknown]
  - Constipation [Unknown]
  - Prostatomegaly [Unknown]
  - Erectile dysfunction [Unknown]
  - Heart rate increased [Unknown]

NARRATIVE: CASE EVENT DATE: 20110110
